FAERS Safety Report 23236590 (Version 2)
Quarter: 2023Q4

REPORT INFORMATION
  Report Type: Report from Study
  Country: US (occurrence: US)
  Receive Date: 20231128
  Receipt Date: 20231130
  Transmission Date: 20240110
  Serious: No
  Sender: FDA-Public Use
  Company Number: US-002147023-NVSC2023US247992

PATIENT
  Sex: Female

DRUGS (1)
  1. COSENTYX [Suspect]
     Active Substance: SECUKINUMAB
     Indication: Product used for unknown indication
     Dosage: TAKES TWO COSENTYX INJECTIONS THE BEGINNING OF EVERY MONTH
     Route: 065

REACTIONS (2)
  - Hypersensitivity [Unknown]
  - Sinusitis [Unknown]
